FAERS Safety Report 17026296 (Version 1)
Quarter: 2019Q4

REPORT INFORMATION
  Report Type: Spontaneous
  Country: US (occurrence: US)
  Receive Date: 20191009
  Receipt Date: 20191009
  Transmission Date: 20200122
  Serious: Yes (Other)
  Sender: FDA-Public Use
  Company Number: None

PATIENT
  Age: 43 Year
  Sex: Female
  Weight: 63.5 kg

DRUGS (2)
  1. PHENYTOIN 100MG [Suspect]
     Active Substance: PHENYTOIN
     Indication: EPILEPSY
     Dates: start: 20190312
  2. PHENYTOIN 100MG [Suspect]
     Active Substance: PHENYTOIN
     Dates: start: 20190912

REACTIONS (1)
  - Drug level below therapeutic [None]
